FAERS Safety Report 8974263 (Version 1)
Quarter: 2012Q4

REPORT INFORMATION
  Report Type: Spontaneous
  Country: US (occurrence: None)
  Receive Date: 20121217
  Receipt Date: 20121217
  Transmission Date: 20130627
  Serious: Yes (Hospitalization)
  Sender: FDA-Public Use
  Company Number: None

PATIENT
  Sex: Male
  Weight: 3 kg

DRUGS (1)
  1. COCOA BUTTER\SHEA BUTTER [Suspect]
     Route: 061
     Dates: start: 20121118, end: 20121119

REACTIONS (4)
  - Off label use [None]
  - Swelling [None]
  - Erythema [None]
  - Urticaria [None]
